FAERS Safety Report 15910294 (Version 1)
Quarter: 2019Q1

REPORT INFORMATION
  Report Type: Spontaneous
  Country: US (occurrence: US)
  Receive Date: 20190204
  Receipt Date: 20190204
  Transmission Date: 20190417
  Serious: No
  Sender: FDA-Public Use
  Company Number: US-ABBVIE-18K-163-2314134-00

PATIENT

DRUGS (4)
  1. HUMIRA [Suspect]
     Active Substance: ADALIMUMAB
     Indication: RHEUMATOID ARTHRITIS
     Route: 058
     Dates: start: 20180331, end: 20180331
  2. PLAQUENIL [Suspect]
     Active Substance: HYDROXYCHLOROQUINE SULFATE
     Indication: RHEUMATOID ARTHRITIS
     Route: 065
  3. METHOTREXATE. [Suspect]
     Active Substance: METHOTREXATE
     Indication: RHEUMATOID ARTHRITIS
     Route: 065
  4. ACTEMRA [Concomitant]
     Active Substance: TOCILIZUMAB
     Indication: RHEUMATOID ARTHRITIS

REACTIONS (13)
  - Fatigue [Unknown]
  - Hyperhidrosis [Unknown]
  - Dyspepsia [Unknown]
  - Gastrointestinal disorder [Unknown]
  - Nasal congestion [Unknown]
  - Haematochezia [Unknown]
  - Injection site pain [Unknown]
  - Diarrhoea [Unknown]
  - Dry mouth [Unknown]
  - Dizziness [Unknown]
  - Pruritus generalised [Unknown]
  - Gastrointestinal pain [Unknown]
  - Nausea [Unknown]

NARRATIVE: CASE EVENT DATE: 2018
